FAERS Safety Report 4902349-2 (Version None)
Quarter: 2006Q1

REPORT INFORMATION
  Report Type: 
  Country: None (occurrence: None)
  Receive Date: 20060202
  Receipt Date: 20060202
  Transmission Date: 20060701
  Serious: Yes (Life-Threatening, Hospitalization, Disabling, Other)
  Sender: FDA-Public Use
  Company Number: None

PATIENT
  Age: 31 Year
  Sex: Male
  Weight: 108.8633 kg

DRUGS (6)
  1. CORICIDIN D SRT [Suspect]
     Indication: UPPER RESPIRATORY TRACT INFECTION
     Dosage: ORAL
     Route: 048
     Dates: start: 19990321, end: 19990402
  2. ALKA-SELTZER PLUS COLD MEDICINE TABLETS [Concomitant]
  3. ALKA-SELTZER PLUS COLD AND COUGH MEDICINE [Concomitant]
  4. NASAL PREPARATION (NOS) [Concomitant]
  5. DILTIAZEM HYDROCHLORIDE [Concomitant]
  6. TYLENOL [Concomitant]

REACTIONS (33)
  - AMNESIA [None]
  - ANEURYSM [None]
  - ANEURYSM RUPTURED [None]
  - BRAIN OEDEMA [None]
  - CEREBROVASCULAR ACCIDENT [None]
  - CONVULSION [None]
  - DEPRESSION [None]
  - DIZZINESS [None]
  - EMOTIONAL DISORDER [None]
  - ERECTILE DYSFUNCTION [None]
  - EXTRADURAL HAEMATOMA [None]
  - HAEMORRHAGE INTRACRANIAL [None]
  - HAEMORRHAGIC STROKE [None]
  - HEADACHE [None]
  - HYDROCEPHALUS [None]
  - HYPERCALCAEMIA [None]
  - HYPERGLYCAEMIA [None]
  - HYPERTENSION [None]
  - HYPOACUSIS [None]
  - INTRACRANIAL HAEMATOMA [None]
  - INTRAVENTRICULAR HAEMORRHAGE [None]
  - NAUSEA [None]
  - NERVOUS SYSTEM DISORDER [None]
  - OTITIS MEDIA [None]
  - PHOTOPHOBIA [None]
  - SENSATION OF HEAVINESS [None]
  - SUBARACHNOID HAEMORRHAGE [None]
  - SUBDURAL HAEMATOMA [None]
  - SURGICAL PROCEDURE REPEATED [None]
  - URINARY TRACT INFECTION [None]
  - VISION BLURRED [None]
  - VISUAL ACUITY REDUCED [None]
  - VOMITING [None]
